FAERS Safety Report 15763126 (Version 1)
Quarter: 2018Q4

REPORT INFORMATION
  Report Type: Spontaneous
  Country: JP (occurrence: JP)
  Receive Date: 20181226
  Receipt Date: 20181226
  Transmission Date: 20190205
  Serious: Yes (Hospitalization)
  Sender: FDA-Public Use
  Company Number: JP-UNITED THERAPEUTICS-UNT-2018-018002

PATIENT
  Age: 7 Decade
  Sex: Male
  Weight: 65 kg

DRUGS (4)
  1. REMODULIN [Suspect]
     Active Substance: TREPROSTINIL
     Indication: PULMONARY ARTERIAL HYPERTENSION
     Dosage: 0.006 ?G/KG, CONTINUING
     Route: 041
  2. REMODULIN [Suspect]
     Active Substance: TREPROSTINIL
     Indication: SCLERODERMA
     Dosage: 0.003 ?G/KG, CONTINUING
     Route: 041
     Dates: start: 20181018, end: 20181021
  3. REMODULIN [Suspect]
     Active Substance: TREPROSTINIL
     Indication: SCLERODERMA
     Dosage: 0.009 ?G/KG, CONTINUING
     Route: 058
     Dates: start: 20181022
  4. REMODULIN [Suspect]
     Active Substance: TREPROSTINIL
     Indication: PULMONARY ARTERIAL HYPERTENSION

REACTIONS (5)
  - Dizziness [Unknown]
  - Nausea [Unknown]
  - Infection [Unknown]
  - Infusion site pain [Unknown]
  - Injection site infection [Unknown]

NARRATIVE: CASE EVENT DATE: 2018
